FAERS Safety Report 7630548-8 (Version None)
Quarter: 2011Q3

REPORT INFORMATION
  Report Type: 
  Country: None (occurrence: None)
  Receive Date: 20110722
  Receipt Date: 20110715
  Transmission Date: 20111222
  Serious: Yes (Hospitalization, Other)
  Sender: FDA-Public Use
  Company Number: US-TEVA-273537USA

PATIENT
  Sex: Male

DRUGS (11)
  1. DICLOFENAC SODIUM [Concomitant]
  2. WARFARIN SODIUM [Concomitant]
  3. MELOXICAM [Concomitant]
     Dosage: 15 MILLIGRAM;
  4. ASPIRIN [Concomitant]
     Indication: BREAKTHROUGH PAIN
     Dosage: 81 MILLIGRAM;
  5. METOPROLOL TARTRATE [Concomitant]
     Dosage: 50 MILLIGRAM;
  6. ROPINIROLE [Concomitant]
  7. LOSARTAN POTASSIUM [Concomitant]
     Dosage: 100 ;
  8. FEBUXOSTAT [Concomitant]
     Dosage: 40 MILLIGRAM;
  9. NATEGLINIDE [Concomitant]
  10. OMEPRAZOLE [Concomitant]
     Dosage: 40 MILLIGRAM;
  11. PROPOXYPHENE NAPSYLATE AND ACETAMINOPHEN [Suspect]
     Indication: ARTHRALGIA
     Dosage: 100 MG/650 MG BID
     Dates: start: 20100401

REACTIONS (5)
  - BUNDLE BRANCH BLOCK RIGHT [None]
  - SICK SINUS SYNDROME [None]
  - HYPERTENSION [None]
  - BRADYCARDIA [None]
  - ATRIAL FLUTTER [None]
